FAERS Safety Report 16290701 (Version 1)
Quarter: 2019Q2

REPORT INFORMATION
  Report Type: Report from Study
  Country: IT (occurrence: IT)
  Receive Date: 20190509
  Receipt Date: 20190509
  Transmission Date: 20190711
  Serious: Yes (Other)
  Sender: FDA-Public Use
  Company Number: IT-MYLANLABS-2019M1043416

PATIENT

DRUGS (5)
  1. CYCLOPHOSPHAMIDE. [Suspect]
     Active Substance: CYCLOPHOSPHAMIDE
     Indication: RHABDOMYOSARCOMA RECURRENT
     Dosage: ALTERNATING BLOCKS ADMINISTERED IN 4H IV INFUSION ON DAYS 1 AND 2; TOTAL DOSE 3000 MG/M2
     Route: 041
  2. CARBOPLATIN. [Suspect]
     Active Substance: CARBOPLATIN
     Dosage: ALTERNATING BLOCKS ADMINISTERED IN A 1H IV INFUSION ON DAYS 1 AND 2 (WHEN GIVEN WITH ETOPOSIDE); ...
     Route: 041
  3. CARBOPLATIN. [Suspect]
     Active Substance: CARBOPLATIN
     Indication: RHABDOMYOSARCOMA RECURRENT
     Dosage: TWO BLOCKS ADMINISTERED IN A 1H IV INFUSION ON DAYS4 AND 5 (WHEN GIVEN WITH TOPOTECAN); TOTAL DOS...
     Route: 041
  4. TOPOTECAN [Suspect]
     Active Substance: TOPOTECAN HYDROCHLORIDE
     Indication: RHABDOMYOSARCOMA RECURRENT
     Dosage: TWO BLOCKS ADMINISTERED VIA 30-MINUTE IV INFUION ON DAYS 1, 2 AND 3; TOTAL DOSE 6MG/M2 PER COURSE
     Route: 041
  5. ETOPOSIDE. [Suspect]
     Active Substance: ETOPOSIDE
     Indication: RHABDOMYOSARCOMA RECURRENT
     Dosage: ALTERNATING BLOCKS ADMINISTERED IN 1H IV INFUSION ON DAYS 1, 2 AND 3; TOTAL DOSE 300 MG/M2
     Route: 041

REACTIONS (2)
  - Renal tubular disorder [Recovered/Resolved]
  - Proteinuria [Recovered/Resolved]
